FAERS Safety Report 4698963-2 (Version None)
Quarter: 2005Q2

REPORT INFORMATION
  Report Type: 
  Country: None (occurrence: None)
  Receive Date: 20050622
  Receipt Date: 20050622
  Transmission Date: 20051028
  Serious: Yes (Hospitalization)
  Sender: FDA-Public Use
  Company Number: None

PATIENT
  Sex: Male
  Weight: 89.4 kg

DRUGS (2)
  1. BACTRIM [Suspect]
     Indication: LUNG DISORDER
     Dosage: 400/160 BID ORAL
     Route: 048
     Dates: start: 20050612, end: 20050614
  2. BACTRIM [Suspect]
     Indication: NOCARDIOSIS
     Dosage: 400/160 BID ORAL
     Route: 048
     Dates: start: 20050612, end: 20050614

REACTIONS (1)
  - TRANSAMINASES INCREASED [None]
